FAERS Safety Report 15757189 (Version 1)
Quarter: 2018Q4

REPORT INFORMATION
  Report Type: Spontaneous
  Country: IT (occurrence: IT)
  Receive Date: 20181224
  Receipt Date: 20181224
  Transmission Date: 20190205
  Serious: Yes (Other)
  Sender: FDA-Public Use
  Company Number: PHHY2016IT042284

PATIENT
  Age: 42 Year
  Sex: Male

DRUGS (5)
  1. BERINERT [Concomitant]
     Active Substance: HUMAN C1-ESTERASE INHIBITOR
     Indication: PREMEDICATION
     Dosage: 1000 U, QW
     Route: 042
     Dates: start: 2013
  2. 5-FLUOROURACIL [Suspect]
     Active Substance: FLUOROURACIL
     Indication: RECTAL CANCER STAGE III
     Dosage: 850 MG/M2, ON DAY 2 FOR 8 CYCLES, UNK
     Route: 042
     Dates: start: 2013
  3. NORMAL SALINE [Concomitant]
     Active Substance: SODIUM CHLORIDE
     Indication: MEDICATION DILUTION
     Dosage: 100 ML, QW
     Route: 042
     Dates: start: 2013
  4. OXALIPLATIN. [Suspect]
     Active Substance: OXALIPLATIN
     Indication: RECTAL CANCER STAGE III
     Dosage: 85 MG/M2, ON DAY 1 FOR 8 CYCLES, UNK
     Route: 042
     Dates: start: 2013
  5. LEUCOVORIN. [Suspect]
     Active Substance: LEUCOVORIN
     Indication: RECTAL CANCER STAGE III
     Dosage: 250 MG/M2, ON DAY 2 FOR 8 CYCLES
     Route: 042
     Dates: start: 2013

REACTIONS (2)
  - Neuropathy peripheral [Unknown]
  - Hereditary angioedema [Recovering/Resolving]

NARRATIVE: CASE EVENT DATE: 2013
